FAERS Safety Report 11307448 (Version 1)
Quarter: 2015Q3

REPORT INFORMATION
  Report Type: Spontaneous
  Country: US (occurrence: US)
  Receive Date: 20150723
  Receipt Date: 20150723
  Transmission Date: 20151125
  Serious: No
  Sender: FDA-Public Use
  Company Number: US-BAUSCH-SP08286

PATIENT
  Age: 58 Year
  Sex: Female
  Weight: 74.91 kg

DRUGS (22)
  1. NASOCORT [Concomitant]
     Active Substance: BUDESONIDE
     Indication: MULTIPLE ALLERGIES
  2. MACRODANTIN [Concomitant]
     Active Substance: NITROFURANTOIN
  3. IMODIUM [Concomitant]
     Active Substance: LOPERAMIDE HYDROCHLORIDE
     Dosage: 1/2 TO 1 DAILY
  4. CALCIUM WITH VITAMIN D [Concomitant]
     Active Substance: CALCIUM\VITAMIN D
  5. RESVERATROL [Concomitant]
     Active Substance: RESVERATROL
     Indication: BLOOD CHOLESTEROL
  6. CINNAMON. [Concomitant]
     Active Substance: CINNAMON
     Indication: BLOOD CHOLESTEROL
     Route: 048
  7. XOPENEX [Concomitant]
     Active Substance: LEVALBUTEROL HYDROCHLORIDE
     Indication: DYSPNOEA
  8. GINKO BILOBA [Concomitant]
     Active Substance: GINKGO
  9. HERBAL FIBER [Concomitant]
     Dosage: 2-3 TIMES WEEKLY
  10. PREVACID [Concomitant]
     Active Substance: LANSOPRAZOLE
     Indication: GASTROOESOPHAGEAL REFLUX DISEASE
  11. XOPENEX [Concomitant]
     Active Substance: LEVALBUTEROL HYDROCHLORIDE
     Indication: ASTHMA
  12. PREMARIN [Concomitant]
     Active Substance: ESTROGENS, CONJUGATED
  13. XIFAXAN [Suspect]
     Active Substance: RIFAXIMIN
     Indication: OVERGROWTH BACTERIAL
     Route: 048
     Dates: start: 20140911, end: 20140911
  14. MULTIVITAMIN [Concomitant]
     Active Substance: VITAMINS
  15. GRAPEFRUIT SEE EXTRACT [Concomitant]
     Indication: BLOOD CHOLESTEROL
  16. BENADRYL [Concomitant]
     Active Substance: DIPHENHYDRAMINE HYDROCHLORIDE
     Indication: MULTIPLE ALLERGIES
  17. TERAZOL [Concomitant]
     Active Substance: TERCONAZOLE
  18. VITAMIN B12 [Concomitant]
     Active Substance: CYANOCOBALAMIN
     Indication: PERNICIOUS ANAEMIA
  19. BENADRYL [Concomitant]
     Active Substance: DIPHENHYDRAMINE HYDROCHLORIDE
     Indication: SLEEP DISORDER
  20. VITAMIN B AND C [Concomitant]
     Indication: BLOOD CHOLESTEROL
  21. GLUCOSAMINE [Concomitant]
     Active Substance: GLUCOSAMINE
  22. OMEGA 369 [Concomitant]
     Active Substance: FISH OIL
     Indication: BLOOD CHOLESTEROL

REACTIONS (2)
  - Throat tightness [Recovering/Resolving]
  - Dysphonia [Recovering/Resolving]

NARRATIVE: CASE EVENT DATE: 20140911
